FAERS Safety Report 22936057 (Version 3)
Quarter: 2023Q4

REPORT INFORMATION
  Report Type: Spontaneous
  Country: MX (occurrence: MX)
  Receive Date: 20230912
  Receipt Date: 20231120
  Transmission Date: 20240110
  Serious: Yes (Hospitalization, Other)
  Sender: FDA-Public Use
  Company Number: MX-GILEAD-2023-0642656

PATIENT
  Age: 41 Year
  Sex: Female

DRUGS (1)
  1. BIKTARVY [Suspect]
     Active Substance: BICTEGRAVIR SODIUM\EMTRICITABINE\TENOFOVIR ALAFENAMIDE FUMARATE
     Indication: HIV infection
     Dosage: 1 DOSAGE FORM, QD
     Route: 048
     Dates: start: 20230201, end: 20230901

REACTIONS (9)
  - Chest pain [Unknown]
  - Dyspnoea [Not Recovered/Not Resolved]
  - Embolism [Unknown]
  - Pulmonary embolism [Not Recovered/Not Resolved]
  - Weight increased [Unknown]
  - Headache [Not Recovered/Not Resolved]
  - Oedema peripheral [Not Recovered/Not Resolved]
  - Gait disturbance [Not Recovered/Not Resolved]
  - Peripheral venous disease [Unknown]

NARRATIVE: CASE EVENT DATE: 20230710
